FAERS Safety Report 9896946 (Version 2)
Quarter: 2014Q1

REPORT INFORMATION
  Report Type: Spontaneous
  Country: US (occurrence: US)
  Receive Date: 20140214
  Receipt Date: 20140310
  Transmission Date: 20141002
  Serious: Yes (Hospitalization)
  Sender: FDA-Public Use
  Company Number: US-BIOGENIDEC-2014BI003737

PATIENT
  Age: 44 Year
  Sex: Female

DRUGS (10)
  1. TYSABRI [Suspect]
     Indication: MULTIPLE SCLEROSIS
     Route: 042
     Dates: start: 20100715
  2. ACETAMINOPHEN [Concomitant]
     Route: 048
  3. BACLOFEN [Concomitant]
  4. LINZESS [Concomitant]
  5. LORATADINE [Concomitant]
     Route: 048
  6. LYRICA [Concomitant]
  7. NUVIGIL [Concomitant]
     Route: 048
  8. PROBIOTIC [Concomitant]
  9. SYNTHROID [Concomitant]
  10. VALTREX [Concomitant]
     Route: 048

REACTIONS (1)
  - Gait disturbance [Unknown]
